FAERS Safety Report 10575895 (Version 1)
Quarter: 2014Q4

REPORT INFORMATION
  Report Type: Spontaneous
  Country: US (occurrence: None)
  Receive Date: 20141110
  Receipt Date: 20141110
  Transmission Date: 20150529
  Serious: Yes (Hospitalization)
  Sender: FDA-Public Use
  Company Number: None

PATIENT
  Age: 22 Year
  Sex: Female
  Weight: 87.09 kg

DRUGS (1)
  1. ORTHO EVRA [Suspect]
     Active Substance: ETHINYL ESTRADIOL\NORELGESTROMIN
     Indication: CONTRACEPTION
     Dosage: WEEKLY PATCH APPLIED AS MEDICATED PATCH TO SKIN
     Route: 061
     Dates: start: 20140202, end: 20141102

REACTIONS (2)
  - Pulmonary embolism [None]
  - No reaction on previous exposure to drug [None]

NARRATIVE: CASE EVENT DATE: 20141102
